FAERS Safety Report 24356118 (Version 2)
Quarter: 2024Q4

REPORT INFORMATION
  Report Type: Spontaneous
  Country: FR (occurrence: FR)
  Receive Date: 20240924
  Receipt Date: 20241008
  Transmission Date: 20250114
  Serious: No
  Sender: AMGEN
  Company Number: FR-Vifor (International) Inc.-VIT-2024-08298

PATIENT
  Age: 89 Year
  Sex: Female

DRUGS (1)
  1. TAVNEOS [Suspect]
     Active Substance: AVACOPAN
     Indication: Pulmonary alveolar haemorrhage
     Dosage: UNK
     Route: 065

REACTIONS (1)
  - Off label use [Unknown]
